FAERS Safety Report 11322926 (Version 1)
Quarter: 2015Q3

REPORT INFORMATION
  Report Type: Spontaneous
  Country: US (occurrence: US)
  Receive Date: 20150730
  Receipt Date: 20150730
  Transmission Date: 20151125
  Serious: No
  Sender: FDA-Public Use
  Company Number: US-BIOGENIDEC-2015BI106522

PATIENT
  Age: 58 Year
  Sex: Male

DRUGS (2)
  1. AMPYRA [Concomitant]
     Active Substance: DALFAMPRIDINE
  2. TECFIDERA [Suspect]
     Active Substance: DIMETHYL FUMARATE
     Indication: MULTIPLE SCLEROSIS
     Dates: start: 20141016

REACTIONS (3)
  - Muscular weakness [Unknown]
  - Multiple sclerosis relapse [Unknown]
  - Fall [Unknown]

NARRATIVE: CASE EVENT DATE: 20150725
